FAERS Safety Report 7355189-1 (Version None)
Quarter: 2011Q1

REPORT INFORMATION
  Report Type: 
  Country: None (occurrence: None)
  Receive Date: 20110316
  Receipt Date: 20110301
  Transmission Date: 20110831
  Serious: Yes (Hospitalization, Other)
  Sender: FDA-Public Use
  Company Number: US-PFIZER INC-2011030888

PATIENT
  Sex: Female
  Weight: 79 kg

DRUGS (7)
  1. PREMARIN [Suspect]
     Dosage: 0.625 MG, 1X/DAY
     Route: 048
     Dates: start: 20010101, end: 20020101
  2. ACETYLSALICYLIC ACID [Concomitant]
     Indication: CEREBROVASCULAR ACCIDENT
     Dosage: 81 MG, 1X/DAY
     Route: 048
  3. PREMPRO [Suspect]
     Indication: HORMONE REPLACEMENT THERAPY
     Dosage: 0.625/2.50 MG DAILY
     Route: 048
     Dates: start: 19980501, end: 20010101
  4. PREMPRO [Suspect]
     Indication: OSTEOPOROSIS
  5. SYNTHROID [Concomitant]
     Indication: HYPOTHYROIDISM
     Dosage: 225 UG, 1X/DAY
     Route: 048
  6. OSCAL 500-D [Concomitant]
     Dosage: 1000 MG, UNK
     Route: 048
  7. CLIMARA [Suspect]
     Dosage: 0.05 MG, 1X/DAY
     Route: 062
     Dates: start: 20040101, end: 20070101

REACTIONS (1)
  - BREAST CANCER IN SITU [None]
